FAERS Safety Report 24220490 (Version 2)
Quarter: 2024Q3

REPORT INFORMATION
  Report Type: Spontaneous
  Country: US (occurrence: US)
  Receive Date: 20240818
  Receipt Date: 20240917
  Transmission Date: 20241017
  Serious: No
  Sender: SANOFI AVENTIS
  Company Number: US-SA-SAC20240812000521

PATIENT
  Age: 58 Year
  Sex: Female

DRUGS (1)
  1. DUPIXENT [Suspect]
     Active Substance: DUPILUMAB
     Indication: Asthma
     Dosage: 300 MG, QOW
     Route: 058

REACTIONS (10)
  - Headache [Unknown]
  - Fatigue [Unknown]
  - COVID-19 [Unknown]
  - Illness [Unknown]
  - Dyspnoea [Unknown]
  - Arthralgia [Unknown]
  - Asthma [Unknown]
  - Injection site swelling [Recovered/Resolved]
  - Dry eye [Unknown]
  - Eye pruritus [Unknown]

NARRATIVE: CASE EVENT DATE: 20240601
